FAERS Safety Report 25150254 (Version 1)
Quarter: 2025Q2

REPORT INFORMATION
  Report Type: Other
  Country: PT (occurrence: PT)
  Receive Date: 20250402
  Receipt Date: 20250402
  Transmission Date: 20250716
  Serious: Yes (Hospitalization, Other)
  Sender: RENATA LIMITED
  Company Number: PT-Renata Limited-2174108

PATIENT
  Age: 51 Year
  Sex: Male

DRUGS (6)
  1. PREGABALIN [Suspect]
     Active Substance: PREGABALIN
     Indication: Anxiety
  2. PREGABALIN [Suspect]
     Active Substance: PREGABALIN
     Indication: Pain
  3. FENTANYL [Suspect]
     Active Substance: FENTANYL
  4. MORPHINE SULFATE [Concomitant]
     Active Substance: MORPHINE SULFATE
  5. CLONAZEPAM [Concomitant]
     Active Substance: CLONAZEPAM
  6. SENNA [Concomitant]
     Active Substance: SENNOSIDES

REACTIONS (3)
  - Face oedema [Recovering/Resolving]
  - Product use in unapproved indication [Unknown]
  - Drug interaction [Unknown]
